FAERS Safety Report 11614482 (Version 2)
Quarter: 2015Q4

REPORT INFORMATION
  Report Type: Report from Study
  Country: DE (occurrence: DE)
  Receive Date: 20151009
  Receipt Date: 20151028
  Transmission Date: 20160304
  Serious: Yes (Death)
  Sender: FDA-Public Use
  Company Number: DE-BEH-2015054547

PATIENT
  Age: 79 Year
  Sex: Male
  Weight: 56.5 kg

DRUGS (15)
  1. PRIVIGEN [Suspect]
     Active Substance: HUMAN IMMUNOGLOBULIN G
     Dosage: INFUSION SPEED: MIN. 2ML/MIN, MAX. 3 ML/MIN
     Dates: start: 20150119, end: 20150119
  2. GLUCOCORTICOIDS [Concomitant]
     Active Substance: UNSPECIFIED INGREDIENT
  3. PANTOPRAZOL [Concomitant]
     Active Substance: PANTOPRAZOLE SODIUM
  4. COTRIM [Concomitant]
     Active Substance: SULFAMETHOXAZOLE\TRIMETHOPRIM
  5. PRIVIGEN [Suspect]
     Active Substance: HUMAN IMMUNOGLOBULIN G
     Dosage: INFUSION SPEED: MIN. 2ML/MIN, MAX. 3 ML/MIN
     Dates: start: 20150213, end: 20150213
  6. MARCUMAR [Concomitant]
     Active Substance: PHENPROCOUMON
  7. EMSER SOLE [Concomitant]
  8. PREDNISOLON [Concomitant]
     Active Substance: PREDNISOLONE
     Indication: PREMEDICATION
     Route: 042
     Dates: start: 20141215, end: 20141215
  9. SPASMEX [Concomitant]
     Active Substance: TROSPIUM CHLORIDE
  10. ANGOCIN [Concomitant]
  11. DIGIMERK MINOR [Concomitant]
  12. PRIVIGEN [Suspect]
     Active Substance: HUMAN IMMUNOGLOBULIN G
     Indication: HUMORAL IMMUNE DEFECT
     Dosage: INFUSION SPEED: MIN. 2ML/MIN, MAX. 3 ML/MIN
     Dates: start: 20141215, end: 20141215
  13. BELOK ZOK MITE [Concomitant]
     Active Substance: METOPROLOL SUCCINATE
  14. MUCOSOLVAN [Concomitant]
     Active Substance: AMBROXOL HYDROCHLORIDE
  15. PREDNISOLON [Concomitant]
     Active Substance: PREDNISOLONE
     Route: 042
     Dates: start: 20150119, end: 20150119

REACTIONS (4)
  - Pneumonia [Fatal]
  - Pseudomonas infection [Fatal]
  - Chronic lymphocytic leukaemia [Fatal]
  - Bronchitis [Recovering/Resolving]

NARRATIVE: CASE EVENT DATE: 201412
